FAERS Safety Report 6321940-2 (Version None)
Quarter: 2009Q3

REPORT INFORMATION
  Report Type: 
  Country: None (occurrence: None)
  Receive Date: 20090824
  Receipt Date: 20090814
  Transmission Date: 20100115
  Serious: Yes (Hospitalization)
  Sender: FDA-Public Use
  Company Number: US-AMGEN-US360194

PATIENT
  Sex: Female

DRUGS (6)
  1. NEUPOGEN [Suspect]
     Indication: CHEMOTHERAPY
     Dates: start: 20090523
  2. DOCETAXEL [Suspect]
     Route: 042
     Dates: start: 20090520
  3. CYCLOPHOSPHAMIDE [Suspect]
     Route: 042
     Dates: start: 20090520
  4. DEXAMETHASONE [Concomitant]
  5. ATENOLOL [Concomitant]
  6. HYDROCHLOROTHIAZIDE [Concomitant]

REACTIONS (1)
  - RASH PRURITIC [None]
